FAERS Safety Report 5213915-1 (Version None)
Quarter: 2007Q1

REPORT INFORMATION
  Report Type: 
  Country: None (occurrence: None)
  Receive Date: 20070117
  Receipt Date: 20070108
  Transmission Date: 20070707
  Serious: Yes (Death, Hospitalization)
  Sender: FDA-Public Use
  Company Number: 163-C5013-06091209

PATIENT
  Age: 45 Year
  Sex: Female
  Weight: 97.5 kg

DRUGS (18)
  1. CC-5013 (LENALIDOMIDE) (CAPSULES) [Suspect]
     Indication: MULTIPLE MYELOMA
     Dosage: DAILY, ORAL
     Route: 048
     Dates: start: 20060609, end: 20060601
  2. VELCADE [Suspect]
     Indication: MULTIPLE MYELOMA
  3. DOXIL [Suspect]
     Indication: MULTIPLE MYELOMA
  4. DEXAMETHASONE TAB [Suspect]
     Indication: MULTIPLE MYELOMA
  5. DULCOLAX [Concomitant]
  6. MAGNESIUM CITRATE [Concomitant]
  7. PROTONIX [Concomitant]
  8. CYMBALTA [Concomitant]
  9. ALLOPURINOL SODIUM [Concomitant]
  10. ASPART NOVOLOG [Concomitant]
  11. HUMALOG MIX 75/25 [Concomitant]
  12. OXYCONTIN [Concomitant]
  13. OXYCODONE HCL [Concomitant]
  14. ATIVAN [Concomitant]
  15. SENOKOT-S (TABLETS) [Concomitant]
  16. MIRALAX [Concomitant]
  17. VALTREX [Concomitant]
  18. LEVAQUIN [Concomitant]

REACTIONS (13)
  - ASPARTATE AMINOTRANSFERASE INCREASED [None]
  - BACK PAIN [None]
  - BACTERAEMIA [None]
  - BLOOD ELECTROLYTES ABNORMAL [None]
  - BLOOD PH ABNORMAL [None]
  - BLOOD POTASSIUM INCREASED [None]
  - HERPES ZOSTER [None]
  - HYPOTENSION [None]
  - MENTAL STATUS CHANGES [None]
  - MULTI-ORGAN FAILURE [None]
  - PLATELET COUNT DECREASED [None]
  - RESPIRATORY DISTRESS [None]
  - SEPTIC SHOCK [None]
